FAERS Safety Report 10202331 (Version 1)
Quarter: 2014Q2

REPORT INFORMATION
  Report Type: Spontaneous
  Country: GB (occurrence: GB)
  Receive Date: 20140528
  Receipt Date: 20140528
  Transmission Date: 20141212
  Serious: Yes (Hospitalization)
  Sender: FDA-Public Use
  Company Number: GB-TEVA-482507ISR

PATIENT
  Age: 84 Year
  Sex: Female

DRUGS (7)
  1. VERAPAMIL [Suspect]
     Indication: ATRIAL FIBRILLATION
     Dosage: 120 MILLIGRAM DAILY;
     Route: 048
     Dates: start: 20140411
  2. APIXABAN [Suspect]
     Indication: ATRIAL FIBRILLATION
     Dosage: 5 MILLIGRAM DAILY;
     Route: 048
     Dates: start: 20130729, end: 20140501
  3. DIGOXIN [Suspect]
     Indication: ATRIAL FIBRILLATION
     Dosage: 62.5 MICROGRAM DAILY; IN THE MORNING
     Route: 048
     Dates: start: 20140411
  4. COLECALCIFEROL [Concomitant]
  5. FUROSEMIDE [Concomitant]
  6. PARACETAMOL [Concomitant]
  7. RAMIPRIL [Concomitant]

REACTIONS (4)
  - Gastrointestinal haemorrhage [Not Recovered/Not Resolved]
  - Melaena [Unknown]
  - Haematemesis [Unknown]
  - Haemoglobin decreased [Not Recovered/Not Resolved]
